FAERS Safety Report 7016353-4 (Version None)
Quarter: 2010Q3

REPORT INFORMATION
  Report Type: 
  Country: None (occurrence: None)
  Receive Date: 20100927
  Receipt Date: 20100915
  Transmission Date: 20110219
  Serious: Yes (Other)
  Sender: FDA-Public Use
  Company Number: FR-PFIZER INC-2010116763

PATIENT
  Age: 64 Year
  Sex: Male

DRUGS (1)
  1. LYRICA [Suspect]
     Dosage: 50 MG, ONE CAPSULE IN THE MORNING AND EVENING
     Dates: start: 20080101, end: 20080101

REACTIONS (2)
  - PERIPHERAL COLDNESS [None]
  - VISUAL IMPAIRMENT [None]
